FAERS Safety Report 10067475 (Version 1)
Quarter: 2014Q2

REPORT INFORMATION
  Report Type: Spontaneous
  Country: US (occurrence: None)
  Receive Date: 20140408
  Receipt Date: 20140408
  Transmission Date: 20141212
  Serious: Yes (Life-Threatening, Hospitalization, Disabling)
  Sender: FDA-Public Use
  Company Number: None

PATIENT
  Age: 36 Year
  Sex: Female
  Weight: 38 kg

DRUGS (1)
  1. ADCETRIS [Suspect]
     Indication: HODGKIN^S DISEASE
     Dosage: FIVE DOSES ?FIVE DOSES IN 6 MO?
     Route: 042
     Dates: start: 20130822, end: 20140307

REACTIONS (7)
  - Headache [None]
  - Nausea [None]
  - Vomiting [None]
  - Chest pain [None]
  - Convulsion [None]
  - Status epilepticus [None]
  - Progressive multifocal leukoencephalopathy [None]
